FAERS Safety Report 4755511-6 (Version None)
Quarter: 2005Q3

REPORT INFORMATION
  Report Type: 
  Country: None (occurrence: None)
  Receive Date: 20050830
  Receipt Date: 20050413
  Transmission Date: 20060218
  Serious: Yes (Other)
  Sender: FDA-Public Use
  Company Number: US-BRISTOL-MYERS SQUIBB COMPANY-12932042

PATIENT
  Age: 21 Year
  Sex: Male
  Weight: 68 kg

DRUGS (3)
  1. ABILIFY [Suspect]
     Indication: ATTENTION DEFICIT/HYPERACTIVITY DISORDER
     Dates: start: 20050407
  2. ABILIFY [Suspect]
     Indication: BIPOLAR DISORDER
     Dates: start: 20050407
  3. DEPAKOTE [Concomitant]

REACTIONS (3)
  - DISTURBANCE IN ATTENTION [None]
  - MEMORY IMPAIRMENT [None]
  - PRIAPISM [None]
